FAERS Safety Report 7473741-X (Version None)
Quarter: 2011Q2

REPORT INFORMATION
  Report Type: 
  Country: None (occurrence: None)
  Receive Date: 20110511
  Receipt Date: 20110506
  Transmission Date: 20111010
  Serious: Yes (Other)
  Sender: FDA-Public Use
  Company Number: US-BRISTOL-MYERS SQUIBB COMPANY-15727167

PATIENT
  Sex: Female

DRUGS (2)
  1. GLIPIZIDE [Suspect]
  2. METFORMIN HCL [Suspect]

REACTIONS (3)
  - DIARRHOEA [None]
  - FALL [None]
  - UPPER LIMB FRACTURE [None]
